FAERS Safety Report 6941498-4 (Version None)
Quarter: 2010Q3

REPORT INFORMATION
  Report Type: 
  Country: None (occurrence: None)
  Receive Date: 20100825
  Receipt Date: 20100726
  Transmission Date: 20110219
  Serious: Yes (Other)
  Sender: FDA-Public Use
  Company Number: PHEH2008US06327

PATIENT
  Sex: Female
  Weight: 73.469 kg

DRUGS (7)
  1. ZOMETA [Suspect]
     Indication: OSTEOPOROSIS
     Dosage: UNK, Q 6 MONTHS
     Dates: end: 20070101
  2. FEMARA [Suspect]
     Dosage: UNK
     Dates: end: 20060101
  3. NEXIUM [Concomitant]
     Dosage: UNK
  4. CHEMOTHERAPEUTICS NOS [Concomitant]
  5. FOSAMAX [Concomitant]
  6. CALCIUM [Concomitant]
  7. EVISTA [Concomitant]

REACTIONS (45)
  - ANXIETY [None]
  - ARTHRALGIA [None]
  - BALANCE DISORDER [None]
  - BONE PAIN [None]
  - CHEST DISCOMFORT [None]
  - CHEST PAIN [None]
  - CONSTIPATION [None]
  - CONTUSION [None]
  - COUGH [None]
  - DECREASED APPETITE [None]
  - DEPRESSION [None]
  - DISCOMFORT [None]
  - DUODENITIS [None]
  - DYSGEUSIA [None]
  - DYSPHAGIA [None]
  - EMOTIONAL DISTRESS [None]
  - FATIGUE [None]
  - GASTRITIS [None]
  - GINGIVAL PAIN [None]
  - HAEMORRHAGE [None]
  - HEADACHE [None]
  - HEARING IMPAIRED [None]
  - HIATUS HERNIA [None]
  - HYPERSENSITIVITY [None]
  - INJURY [None]
  - INSOMNIA [None]
  - MASTICATION DISORDER [None]
  - MYALGIA [None]
  - OEDEMA PERIPHERAL [None]
  - OROPHARYNGEAL PAIN [None]
  - OSTEONECROSIS OF JAW [None]
  - OSTEOPENIA [None]
  - PAIN [None]
  - PALPITATIONS [None]
  - PERIODONTAL DISEASE [None]
  - POLLAKIURIA [None]
  - PRODUCTIVE COUGH [None]
  - PYREXIA [None]
  - QUALITY OF LIFE DECREASED [None]
  - SCAR [None]
  - TEMPERATURE INTOLERANCE [None]
  - THIRST [None]
  - TOOTH EXTRACTION [None]
  - TOOTHACHE [None]
  - VISUAL IMPAIRMENT [None]
